FAERS Safety Report 5974358-6 (Version None)
Quarter: 2008Q4

REPORT INFORMATION
  Report Type: 
  Country: None (occurrence: None)
  Receive Date: 20081128
  Receipt Date: 20081118
  Transmission Date: 20090506
  Serious: Yes (Hospitalization)
  Sender: FDA-Public Use
  Company Number: 1-16800373

PATIENT
  Age: 63 Year
  Sex: Female
  Weight: 77.8372 kg

DRUGS (7)
  1. BACTRIM DS [Suspect]
     Indication: SINUSITIS
     Dosage: ORAL
     Route: 048
     Dates: start: 20081021, end: 20081027
  2. ATORVASTATIN CALCIUM [Concomitant]
  3. PLAVIX [Concomitant]
  4. TRICOR [Concomitant]
  5. LISINOPRIL [Concomitant]
  6. TOPROL-XL [Concomitant]
  7. NITROGLYCERIN [Concomitant]

REACTIONS (7)
  - ALANINE AMINOTRANSFERASE INCREASED [None]
  - ASPARTATE AMINOTRANSFERASE INCREASED [None]
  - DRUG HYPERSENSITIVITY [None]
  - HYPOTENSION [None]
  - PANCYTOPENIA [None]
  - PYREXIA [None]
  - SERUM FERRITIN INCREASED [None]
